FAERS Safety Report 24139311 (Version 1)
Quarter: 2024Q3

REPORT INFORMATION
  Report Type: Spontaneous
  Country: UG (occurrence: UG)
  Receive Date: 20240726
  Receipt Date: 20240726
  Transmission Date: 20241017
  Serious: Yes (Hospitalization)
  Sender: STRIDES
  Company Number: UG-STRIDES ARCOLAB LIMITED-2024SP009079

PATIENT
  Age: 19 Year
  Sex: Female

DRUGS (5)
  1. ACYCLOVIR [Suspect]
     Active Substance: ACYCLOVIR
     Indication: Anogenital warts
     Dosage: 400 MILLIGRAM, TID, TABLET
     Route: 048
  2. ACYCLOVIR [Suspect]
     Active Substance: ACYCLOVIR
     Indication: Haemorrhage
  3. ACYCLOVIR [Suspect]
     Active Substance: ACYCLOVIR
     Indication: Infection
  4. QUININE [Suspect]
     Active Substance: QUININE
     Indication: Malaria
     Dosage: UNK
     Route: 065
  5. EFAVIRENZ\LAMIVUDINE\TENOFOVIR DISOPROXIL FUMARATE [Suspect]
     Active Substance: EFAVIRENZ\LAMIVUDINE\TENOFOVIR DISOPROXIL FUMARATE
     Indication: HIV infection
     Dosage: UNK
     Route: 065

REACTIONS (5)
  - Intentional product misuse [Unknown]
  - Anaemia [Recovered/Resolved]
  - Disease recurrence [Recovered/Resolved]
  - Treatment noncompliance [Unknown]
  - Maternal exposure during pregnancy [Unknown]
